FAERS Safety Report 17045939 (Version 1)
Quarter: 2019Q4

REPORT INFORMATION
  Report Type: Spontaneous
  Country: US (occurrence: US)
  Receive Date: 20191119
  Receipt Date: 20191119
  Transmission Date: 20200122
  Serious: No
  Sender: FDA-Public Use
  Company Number: US-SHIRE-US201939377

PATIENT
  Age: 76 Year
  Sex: Female

DRUGS (1)
  1. MOTEGRITY [Suspect]
     Active Substance: PRUCALOPRIDE SUCCINATE
     Indication: CONSTIPATION
     Dosage: 2 MILLIGRAM, 1X/DAY:QD
     Route: 065
     Dates: start: 20191023, end: 20191110

REACTIONS (4)
  - Dizziness [Unknown]
  - Abdominal discomfort [Unknown]
  - Faeces discoloured [Unknown]
  - Nausea [Unknown]

NARRATIVE: CASE EVENT DATE: 20191023
